FAERS Safety Report 8791052 (Version 1)
Quarter: 2012Q4

REPORT INFORMATION
  Report Type: Spontaneous
  Country: US (occurrence: None)
  Receive Date: 20120910
  Receipt Date: 20120910
  Transmission Date: 20130627
  Serious: Yes (Other)
  Sender: FDA-Public Use
  Company Number: DSA_59392_2012

PATIENT
  Age: 51 Year
  Sex: Male

DRUGS (4)
  1. METRONIDAZOLE [Suspect]
     Indication: OSTEOMYELITIS
     Dosage: df parental a few weeks
     Route: 051
  2. CIPROFLOXACIN [Suspect]
     Dosage: df parenteral a few weeks
  3. SULFAMETHOXAZOLE AND TRIMETHOPRIM [Suspect]
     Dosage: df
  4. VANCOMYCIN [Suspect]
     Indication: OSTEOMYELITIS
     Dosage: df parenteral a few weeks

REACTIONS (4)
  - Drug ineffective [None]
  - Drug reaction with eosinophilia and systemic symptoms [None]
  - Hepatitis [None]
  - Human herpesvirus 6 infection [None]
